FAERS Safety Report 18756615 (Version 3)
Quarter: 2022Q1

REPORT INFORMATION
  Report Type: Spontaneous
  Country: GB (occurrence: GB)
  Receive Date: 20210119
  Receipt Date: 20220228
  Transmission Date: 20220424
  Serious: Yes (Life-Threatening, Hospitalization, Other)
  Sender: FDA-Public Use
  Company Number: GB-MLMSERVICE-20201231-2657095-1

PATIENT
  Age: 48 Year
  Sex: Male

DRUGS (7)
  1. DOXORUBICIN [Suspect]
     Active Substance: DOXORUBICIN
     Indication: B-cell lymphoma
     Dosage: EVERY 3 WEEKS (THREE CYCLES)
  2. RITUXIMAB [Suspect]
     Active Substance: RITUXIMAB
     Indication: B-cell lymphoma
     Dosage: EVERY 3 WEEKS (THREE CYCLES)
  3. VINCRISTINE SULFATE [Suspect]
     Active Substance: VINCRISTINE SULFATE
     Indication: B-cell lymphoma
     Dosage: EVERY 3 WEEKS (THREE CYCLES)
  4. CLOZAPINE [Suspect]
     Active Substance: CLOZAPINE
     Indication: Schizophrenia
     Dosage: 300 MG
  5. CLOZAPINE [Suspect]
     Active Substance: CLOZAPINE
     Dosage: 450 MG
  6. CYCLOPHOSPHAMIDE [Suspect]
     Active Substance: CYCLOPHOSPHAMIDE
     Indication: B-cell lymphoma
     Dosage: EVERY 3 WEEKS (THREE CYCLES)
  7. PREDNISOLONE [Suspect]
     Active Substance: PREDNISOLONE
     Indication: B-cell lymphoma
     Dosage: EVERY 3 WEEKS (THREE CYCLES)

REACTIONS (1)
  - Neutropenia [Recovered/Resolved]
